FAERS Safety Report 20108022 (Version 1)
Quarter: 2021Q4

REPORT INFORMATION
  Report Type: Spontaneous
  Country: US (occurrence: None)
  Receive Date: 20211123
  Receipt Date: 20211123
  Transmission Date: 20220303
  Serious: No
  Sender: FDA-Public Use
  Company Number: None

PATIENT
  Age: 80 Year
  Sex: Female
  Weight: 67.13 kg

DRUGS (2)
  1. REPATHA [Suspect]
     Active Substance: EVOLOCUMAB
     Indication: Hyperlipidaemia
     Dates: start: 20211027, end: 20211123
  2. REPATHA [Concomitant]
     Active Substance: EVOLOCUMAB
     Dates: start: 20211027, end: 20211123

REACTIONS (2)
  - Injection site pain [None]
  - Injection site irritation [None]

NARRATIVE: CASE EVENT DATE: 20211116
